FAERS Safety Report 17266614 (Version 1)
Quarter: 2020Q1

REPORT INFORMATION
  Report Type: Spontaneous
  Country: US (occurrence: US)
  Receive Date: 20200113
  Receipt Date: 20200113
  Transmission Date: 20200409
  Serious: Yes (Other)
  Sender: FDA-Public Use
  Company Number: None

PATIENT
  Age: 82 Year
  Sex: Male
  Weight: 105.75 kg

DRUGS (14)
  1. METOPROLOL SUCCINATE. [Concomitant]
     Active Substance: METOPROLOL SUCCINATE
  2. B1 VITAMIN [Concomitant]
  3. POTASSIUM GLUCONATE [Concomitant]
     Active Substance: POTASSIUM GLUCONATE
  4. PANTOTHENIC ACID [Concomitant]
     Active Substance: PANTOTHENIC ACID
  5. ALFUZOSIN [Concomitant]
     Active Substance: ALFUZOSIN
  6. TRESIBA [Suspect]
     Active Substance: INSULIN DEGLUDEC
     Indication: DIABETES MELLITUS
     Route: 058
     Dates: start: 20171221, end: 20200113
  7. TRESIBA [Concomitant]
     Active Substance: INSULIN DEGLUDEC
  8. TRIAMCINOLONE CREAM USP [Concomitant]
  9. FEXOFENADINE HCL [Concomitant]
     Active Substance: FEXOFENADINE HYDROCHLORIDE
  10. VITAMIN E [Concomitant]
     Active Substance: .ALPHA.-TOCOPHEROL
  11. FAMOTIDINE. [Concomitant]
     Active Substance: FAMOTIDINE
  12. BROWN SEAWEED [Concomitant]
  13. OLMESARTAN-HCTZ [Concomitant]
     Active Substance: HYDROCHLOROTHIAZIDE\OLMESARTAN MEDOXOMIL
  14. CERA VE [Concomitant]

REACTIONS (2)
  - Rash [None]
  - Pruritus [None]

NARRATIVE: CASE EVENT DATE: 20190531
